FAERS Safety Report 15835192 (Version 3)
Quarter: 2019Q1

REPORT INFORMATION
  Report Type: Spontaneous
  Country: CH (occurrence: CH)
  Receive Date: 20190116
  Receipt Date: 20190124
  Transmission Date: 20190417
  Serious: Yes (Hospitalization)
  Sender: FDA-Public Use
  Company Number: CH-UCBSA-2019001172

PATIENT
  Age: 74 Year
  Sex: Female

DRUGS (25)
  1. EUTHYROX [Suspect]
     Active Substance: LEVOTHYROXINE SODIUM
     Indication: THYROIDECTOMY
     Dosage: 125 ?G, ONCE DAILY (QD)
     Route: 048
  2. FRAGMIN [Suspect]
     Active Substance: DALTEPARIN SODIUM
     Indication: THROMBOSIS PROPHYLAXIS
     Dosage: 2500 IU DAILY
     Route: 058
     Dates: start: 20181027
  3. LAMICTAL [Suspect]
     Active Substance: LAMOTRIGINE
     Indication: FOCAL DYSCOGNITIVE SEIZURES
     Dosage: 25 MG, 2X/DAY (BID)
     Route: 048
     Dates: start: 20181101, end: 20181202
  4. LAMICTAL [Suspect]
     Active Substance: LAMOTRIGINE
     Dosage: 25 MG (2-0-1), 2X/DAY (BID)
     Dates: start: 20181203, end: 20181211
  5. FORTECORTIN [Suspect]
     Active Substance: DEXAMETHASONE
     Indication: CEREBRAL OEDEMA MANAGEMENT
     Dosage: UNK
     Route: 048
     Dates: start: 20181029, end: 20181112
  6. PANTOZOL CONTROL [Suspect]
     Active Substance: PANTOPRAZOLE SODIUM
     Indication: PROPHYLAXIS AGAINST GASTROINTESTINAL ULCER
     Dosage: 20 MG DAILY
     Route: 048
     Dates: start: 20181031
  7. MORPHIN HCL [Concomitant]
     Active Substance: MORPHINE HYDROCHLORIDE
     Indication: PRODUCT USED FOR UNKNOWN INDICATION
     Dosage: 1 DF
     Route: 048
     Dates: start: 20181116, end: 20181116
  8. VALACICLOVIR [Concomitant]
     Active Substance: VALACYCLOVIR HYDROCHLORIDE
     Indication: HERPES ZOSTER
     Dosage: UNK
     Dates: start: 2018
  9. GINKGO BILOBA EXTRACT [Suspect]
     Active Substance: GINKGO
     Indication: PRODUCT USED FOR UNKNOWN INDICATION
     Dosage: 120 MG, ONCE DAILY (QD)
     Route: 048
     Dates: start: 20181028, end: 20181219
  10. MOTILIUM [Concomitant]
     Active Substance: DOMPERIDONE
     Indication: PRODUCT USED FOR UNKNOWN INDICATION
     Dosage: IN TOTAL
     Dates: start: 20181115, end: 20181115
  11. TEBOKAN [Concomitant]
     Active Substance: GINKGO
     Indication: PRODUCT USED FOR UNKNOWN INDICATION
     Dosage: 120 MG, ONCE DAILY (QD)
  12. VALTREX [Suspect]
     Active Substance: VALACYCLOVIR HYDROCHLORIDE
     Indication: HERPES ZOSTER CUTANEOUS DISSEMINATED
     Dosage: 1000 MG, 3X/DAY (TID)
     Route: 048
     Dates: start: 20181116, end: 20181118
  13. VI D3 [Suspect]
     Active Substance: CHOLECALCIFEROL
     Indication: PRODUCT USED FOR UNKNOWN INDICATION
     Dosage: 4000 IU, ONCE DAILY (QD)
  14. ELTROXIN [Concomitant]
     Active Substance: LEVOTHYROXINE
     Indication: THYROIDECTOMY
     Dosage: 100 ?G, ONCE DAILY (QD)
     Dates: start: 20181028
  15. FORTECORTIN [Suspect]
     Active Substance: DEXAMETHASONE
     Dosage: UNK
     Dates: start: 20181202, end: 20181210
  16. DAFALGAN [Suspect]
     Active Substance: ACETAMINOPHEN
     Indication: HEADACHE
     Dosage: 1 G, 4X/DAY (QID)
     Route: 048
     Dates: start: 20181113
  17. IBUPROFEN. [Suspect]
     Active Substance: IBUPROFEN
     Indication: HEADACHE
     Dosage: UNK
     Dates: start: 20181203, end: 20181205
  18. LAXOBERON [Concomitant]
     Active Substance: SODIUM PICOSULFATE
     Indication: PRODUCT USED FOR UNKNOWN INDICATION
     Dosage: UNK
     Dates: start: 20181114, end: 20181116
  19. BRIVIACT [Suspect]
     Active Substance: BRIVARACETAM
     Indication: FOCAL DYSCOGNITIVE SEIZURES
     Dosage: 50 MG, 2X/DAY (BID)
     Route: 048
     Dates: start: 20180729
  20. NOVALGIN (CAFFEINE\PARACETAMOL\PROPYPHENAZONE) [Suspect]
     Active Substance: ACETAMINOPHEN\CAFFEINE\PROPYPHENAZONE
     Indication: PRODUCT USED FOR UNKNOWN INDICATION
     Dosage: 40 GTT, 4X/DAY (QID)
     Route: 048
     Dates: start: 20181113, end: 20181117
  21. HUMULUS LUPULUS [Suspect]
     Active Substance: HOPS
     Indication: PRODUCT USED FOR UNKNOWN INDICATION
     Dosage: 1 DF, AS NEEDED (PRN)
     Route: 048
  22. VALERIANA OFFICINALIS ROOT [Suspect]
     Active Substance: VALERIAN
     Indication: PRODUCT USED FOR UNKNOWN INDICATION
     Dosage: UNK
  23. PARAGOL [Concomitant]
     Active Substance: MINERAL OIL\PHENOLPHTHALEIN
     Indication: PRODUCT USED FOR UNKNOWN INDICATION
     Dosage: UNK
     Dates: start: 20181114, end: 20181116
  24. ASS CARDIO [Suspect]
     Active Substance: ASPIRIN
     Indication: PRODUCT USED FOR UNKNOWN INDICATION
     Dosage: 100 MG, ONCE DAILY (QD)
     Route: 048
     Dates: end: 20181210
  25. PREDNISONE. [Concomitant]
     Active Substance: PREDNISONE
     Indication: PRODUCT USED FOR UNKNOWN INDICATION
     Dosage: UNK

REACTIONS (2)
  - Drug reaction with eosinophilia and systemic symptoms [Not Recovered/Not Resolved]
  - Drug eruption [Not Recovered/Not Resolved]

NARRATIVE: CASE EVENT DATE: 20181202
